FAERS Safety Report 15900293 (Version 2)
Quarter: 2019Q1

REPORT INFORMATION
  Report Type: Spontaneous
  Country: KZ (occurrence: KZ)
  Receive Date: 20190201
  Receipt Date: 20190206
  Transmission Date: 20190417
  Serious: Yes (Death, Other)
  Sender: FDA-Public Use
  Company Number: IND-KZ-009507513-1901KAZ011739

PATIENT
  Age: 9 Year

DRUGS (2)
  1. ESMERON [Suspect]
     Active Substance: ROCURONIUM BROMIDE
     Indication: PERITONITIS
     Dosage: 5ML
     Route: 042
     Dates: start: 20190116
  2. ESMERON [Suspect]
     Active Substance: ROCURONIUM BROMIDE
     Indication: PERITONEAL ABSCESS

REACTIONS (1)
  - Anaphylactic shock [Fatal]

NARRATIVE: CASE EVENT DATE: 20190116
